FAERS Safety Report 7723325 (Version 5)
Quarter: 2013Q1

REPORT INFORMATION
  Report Type: Report from Study
  Country: FR (occurrence: FR)
  Receive Date: 20101220
  Receipt Date: 20130315
  Transmission Date: 20140127
  Serious: Yes (Death, Hospitalization, Other)
  Sender: FDA-Public Use
  Company Number: FR-ACTELION-A-CH2010-42435

PATIENT
  Age: 80 Year
  Sex: Female

DRUGS (5)
  1. TRACLEER [Suspect]
     Indication: PULMONARY ARTERIAL HYPERTENSION
     Dosage: 125 MG, BID
     Route: 048
     Dates: start: 20100701, end: 20101204
  2. TRACLEER [Suspect]
     Dosage: 62.5 MG, BID
     Route: 048
     Dates: start: 20100528, end: 20100630
  3. EUPANTOL [Concomitant]
  4. OFLOCET [Concomitant]
  5. COLCHICINE W/PAPAVER SOM LA/TIEMONIUM METHYLS [Concomitant]

REACTIONS (21)
  - Renal failure acute [Fatal]
  - Scleroderma [Fatal]
  - Condition aggravated [Fatal]
  - Fat embolism [Fatal]
  - Pulmonary fibrosis [Fatal]
  - Concomitant disease aggravated [Fatal]
  - Lung infection [Unknown]
  - Dyspnoea [Unknown]
  - Respiratory failure [Unknown]
  - Liver function test abnormal [Unknown]
  - Hepatocellular injury [Unknown]
  - Cholestasis [Unknown]
  - Extremity necrosis [Unknown]
  - Peripheral ischaemia [Unknown]
  - Alanine aminotransferase increased [Unknown]
  - Blood alkaline phosphatase increased [Unknown]
  - Gamma-glutamyltransferase increased [Unknown]
  - Autonomic nervous system imbalance [Recovering/Resolving]
  - Dialysis [Fatal]
  - Palliative care [Fatal]
  - Renal failure chronic [Fatal]
